FAERS Safety Report 9240003 (Version 1)
Quarter: 2013Q2

REPORT INFORMATION
  Report Type: Spontaneous
  Country: FR (occurrence: FR)
  Receive Date: 20130418
  Receipt Date: 20130418
  Transmission Date: 20140414
  Serious: Yes (Hospitalization)
  Sender: FDA-Public Use
  Company Number: FR-GLAXOSMITHKLINE-B0883187A

PATIENT
  Age: 22 Year
  Sex: Female
  Weight: 65 kg

DRUGS (8)
  1. ZOPHREN [Suspect]
     Indication: NAUSEA
     Dosage: 5MG SINGLE DOSE
     Route: 048
     Dates: start: 20130312, end: 20130312
  2. UROMITEXAN [Suspect]
     Indication: PREMEDICATION
     Dates: start: 20130312, end: 20130312
  3. ETOPOPHOS [Concomitant]
     Indication: HODGKIN^S DISEASE
     Dosage: 348MG CYCLIC
     Dates: start: 20130312, end: 20130312
  4. ONCOVIN [Concomitant]
     Indication: HODGKIN^S DISEASE
     Dosage: 2.4MG CYCLIC
     Dates: start: 20130312, end: 20130312
  5. DOXORUBICINE [Concomitant]
     Indication: HODGKIN^S DISEASE
     Dosage: 60MG CYCLIC
     Dates: start: 20130312, end: 20130312
  6. ENDOXAN [Concomitant]
     Indication: HODGKIN^S DISEASE
     Dosage: 2180MG CYCLIC
     Dates: start: 20130312, end: 20130312
  7. EMEND [Concomitant]
     Indication: PREMEDICATION
     Dosage: 125MG CYCLIC
     Dates: start: 20130312, end: 20130312
  8. BACTRIM [Concomitant]
     Indication: PROPHYLAXIS
     Dates: start: 20130212

REACTIONS (9)
  - Anaphylactic reaction [Recovered/Resolved]
  - Rash [Recovered/Resolved]
  - Dysphagia [Recovered/Resolved]
  - Cough [Recovered/Resolved]
  - Lip oedema [Recovered/Resolved]
  - Respiratory distress [Recovered/Resolved]
  - Chest pain [Recovered/Resolved]
  - Local swelling [Recovered/Resolved]
  - Pyrexia [Recovered/Resolved]
